FAERS Safety Report 25952623 (Version 1)
Quarter: 2025Q4

REPORT INFORMATION
  Report Type: Spontaneous
  Country: GB (occurrence: GB)
  Receive Date: 20251023
  Receipt Date: 20251023
  Transmission Date: 20260118
  Serious: Yes (Hospitalization)
  Sender: JOHNSON AND JOHNSON
  Company Number: GB-MHRA-MIDB-40ac86c8-4ef4-4c91-ad0c-6cb5feabfe80

PATIENT
  Age: 52 Year

DRUGS (2)
  1. TREMFYA [Suspect]
     Active Substance: GUSELKUMAB
     Indication: Product used for unknown indication
     Dosage: 100 MG IN 1ML PRE-FILLED PEN - HAS EVERY 8 WEEKS
  2. ATORVASTATIN [Concomitant]
     Active Substance: ATORVASTATIN
     Indication: Product used for unknown indication

REACTIONS (1)
  - Groin abscess [Recovered/Resolved]

NARRATIVE: CASE EVENT DATE: 20250925
